FAERS Safety Report 9433601 (Version 1)
Quarter: 2013Q3

REPORT INFORMATION
  Report Type: Spontaneous
  Country: ES (occurrence: ES)
  Receive Date: 20130731
  Receipt Date: 20130731
  Transmission Date: 20140515
  Serious: Yes (Other)
  Sender: FDA-Public Use
  Company Number: ES-VERTEX PHARMACEUTICALS INC-2013-008412

PATIENT
  Age: 60 Year
  Sex: Female
  Weight: 77 kg

DRUGS (3)
  1. INCIVO [Suspect]
     Indication: CHRONIC HEPATITIS C
     Dosage: 2.2 G, QD, TABLET
     Route: 048
     Dates: start: 20130517, end: 20130524
  2. REBETOL [Concomitant]
     Indication: CHRONIC HEPATITIS C
     Dosage: DOSAGE FORM: CAPSULE
     Route: 048
     Dates: start: 20130419, end: 20130524
  3. PEGASYS [Concomitant]
     Indication: CHRONIC HEPATITIS C
     Dosage: DOSAGE FORM: INJECTION
     Route: 058
     Dates: start: 20130419, end: 20130524

REACTIONS (5)
  - Gastrointestinal disorder [Unknown]
  - Abdominal discomfort [Recovered/Resolved]
  - Electrolyte imbalance [Recovered/Resolved]
  - Nausea [Recovered/Resolved]
  - Vomiting [Recovered/Resolved]
